FAERS Safety Report 9992959 (Version 1)
Quarter: 2014Q1

REPORT INFORMATION
  Report Type: Report from Study
  Country: US (occurrence: US)
  Receive Date: 20140310
  Receipt Date: 20140310
  Transmission Date: 20141002
  Serious: No
  Sender: FDA-Public Use
  Company Number: US-ABBVIE-14P-163-1187659-00

PATIENT
  Age: 23 Year
  Sex: Female

DRUGS (4)
  1. LUPRON DEPOT [Suspect]
     Indication: ENDOMETRIOSIS
     Dates: start: 20131007, end: 20131007
  2. FIORICET [Concomitant]
     Indication: PRODUCT USED FOR UNKNOWN INDICATION
  3. LOESTRIN [Concomitant]
     Indication: PRODUCT USED FOR UNKNOWN INDICATION
  4. MIRENA [Concomitant]
     Indication: PRODUCT USED FOR UNKNOWN INDICATION
     Dates: end: 20131227

REACTIONS (2)
  - Migraine [Not Recovered/Not Resolved]
  - Hot flush [Recovered/Resolved]
